FAERS Safety Report 4878655-7 (Version None)
Quarter: 2005Q4

REPORT INFORMATION
  Report Type: 
  Country: None (occurrence: None)
  Receive Date: 20051209
  Receipt Date: 20050504
  Transmission Date: 20060501
  Serious: Yes (Other)
  Sender: FDA-Public Use
  Company Number: USA-2005-0019528

PATIENT
  Age: 43 Year
  Sex: Male
  Weight: 115.2 kg

DRUGS (4)
  1. OXYCONTIN [Suspect]
     Indication: PAIN
     Dosage: 40 MG, BID
     Dates: start: 20050101, end: 20050301
  2. PAXIL [Concomitant]
  3. PRILOSEC [Concomitant]
  4. LOTREL [Concomitant]

REACTIONS (11)
  - AGITATION [None]
  - ANXIETY [None]
  - COLD SWEAT [None]
  - DIZZINESS [None]
  - DRUG ABUSER [None]
  - DRUG DEPENDENCE [None]
  - DRUG WITHDRAWAL SYNDROME [None]
  - INSOMNIA [None]
  - PARAESTHESIA [None]
  - RESTLESSNESS [None]
  - VISUAL DISTURBANCE [None]
